FAERS Safety Report 24587595 (Version 2)
Quarter: 2024Q4

REPORT INFORMATION
  Report Type: Spontaneous
  Country: FR (occurrence: FR)
  Receive Date: 20241107
  Receipt Date: 20241111
  Transmission Date: 20250115
  Serious: Yes (Disabling, Other)
  Sender: SANOFI AVENTIS
  Company Number: FR-ASTELLAS-2024-AER-015263

PATIENT
  Age: 52 Year
  Sex: Male
  Weight: 61 kg

DRUGS (2)
  1. TAMSULOSIN HYDROCHLORIDE [Suspect]
     Active Substance: TAMSULOSIN HYDROCHLORIDE
     Indication: Benign prostatic hyperplasia
     Dosage: 0.4 MG, QD
     Route: 048
     Dates: start: 20241026, end: 20241027
  2. CHOLECALCIFEROL [Concomitant]
     Active Substance: CHOLECALCIFEROL
     Indication: Product used for unknown indication
     Dosage: UNK
     Route: 065

REACTIONS (8)
  - Dyspareunia [Not Recovered/Not Resolved]
  - Retrograde ejaculation [Recovered/Resolved]
  - Erection increased [Recovered/Resolved]
  - Pollakiuria [Not Recovered/Not Resolved]
  - Penile pain [Not Recovered/Not Resolved]
  - Dysuria [Not Recovered/Not Resolved]
  - Premature ejaculation [Recovered/Resolved]
  - Tachycardia [Unknown]

NARRATIVE: CASE EVENT DATE: 20241027
